FAERS Safety Report 5301717-7 (Version None)
Quarter: 2007Q1

REPORT INFORMATION
  Report Type: 
  Country: None (occurrence: None)
  Receive Date: 20070201
  Receipt Date: 20061213
  Transmission Date: 20070707
  Serious: No
  Sender: FDA-Public Use
  Company Number: 2006PV026859

PATIENT
  Age: 59 Year
  Sex: Female
  Weight: 87.0906 kg

DRUGS (8)
  1. BYETTA [Suspect]
     Indication: DIABETES MELLITUS NON-INSULIN-DEPENDENT
     Dosage: 10 MCG;QD;SC 10 MCG;BID;SC 5 MCG;BID;SC
     Route: 058
     Dates: start: 20060901, end: 20061101
  2. BYETTA [Suspect]
     Indication: DIABETES MELLITUS NON-INSULIN-DEPENDENT
     Dosage: 10 MCG;QD;SC 10 MCG;BID;SC 5 MCG;BID;SC
     Route: 058
     Dates: start: 20061101, end: 20061201
  3. BYETTA [Suspect]
     Indication: DIABETES MELLITUS NON-INSULIN-DEPENDENT
     Dosage: 10 MCG;QD;SC 10 MCG;BID;SC 5 MCG;BID;SC
     Route: 058
     Dates: start: 20061201
  4. AVANDIA [Concomitant]
  5. AMARYL [Concomitant]
  6. VITAMIN CAP [Concomitant]
  7. FOLIC ACID [Concomitant]
  8. PRIMROSE [Concomitant]

REACTIONS (8)
  - ABDOMINAL DISTENSION [None]
  - ARTHRALGIA [None]
  - ASTHENIA [None]
  - BLOOD GLUCOSE DECREASED [None]
  - DECREASED APPETITE [None]
  - DIZZINESS [None]
  - NAUSEA [None]
  - TREMOR [None]
